FAERS Safety Report 8605100-8 (Version None)
Quarter: 2012Q3

REPORT INFORMATION
  Report Type: 
  Country: None (occurrence: None)
  Receive Date: 20120820
  Receipt Date: 20120814
  Transmission Date: 20120928
  Serious: Yes (Death)
  Sender: FDA-Public Use
  Company Number: US-PFIZER INC-2012165093

PATIENT
  Age: 66 Year
  Sex: Female

DRUGS (4)
  1. COMPAZINE [Concomitant]
     Indication: NAUSEA
     Dosage: UNK
     Dates: start: 20120403
  2. SUTENT [Suspect]
     Indication: RENAL CANCER METASTATIC
     Dosage: 50 MG, DAILY (28 DAYS ON 14 DAYS OFF)
     Route: 048
     Dates: start: 20120403
  3. BYSTOLIC [Concomitant]
     Indication: HYPERTENSION
     Dosage: UNK
     Dates: start: 20120403
  4. LEVOTHYROXINE [Concomitant]
     Indication: HYPOTHYROIDISM
     Dosage: UNK
     Dates: start: 20120403

REACTIONS (2)
  - METASTATIC RENAL CELL CARCINOMA [None]
  - DISEASE PROGRESSION [None]
